FAERS Safety Report 8961659 (Version 2)
Quarter: 2013Q1

REPORT INFORMATION
  Report Type: Report from Study
  Country: CA (occurrence: CA)
  Receive Date: 20121213
  Receipt Date: 20130206
  Transmission Date: 20140127
  Serious: Yes (Hospitalization, Other)
  Sender: FDA-Public Use
  Company Number: CA-JNJFOC-20121201919

PATIENT
  Age: 57 Year
  Sex: Male
  Weight: 75 kg

DRUGS (18)
  1. REMICADE [Suspect]
     Indication: ANKYLOSING SPONDYLITIS
     Route: 042
     Dates: start: 20091014
  2. TECTA [Concomitant]
     Route: 048
  3. GABAPENTIN [Concomitant]
     Route: 048
  4. HYDROMORPH CONTIN [Concomitant]
     Route: 048
  5. HYDROMORPHONE [Concomitant]
     Dosage: TAKE WHEN NEEDED
     Route: 065
  6. CRESTOR [Concomitant]
     Route: 048
  7. COVERSYL [Concomitant]
     Route: 048
  8. BISOPROLOL [Concomitant]
     Route: 048
  9. VENTOLIN [Concomitant]
     Dosage: 2 PUFFS EVERY FOUR HOURS
     Route: 065
  10. SPIRIVA [Concomitant]
     Dosage: ONE PUFF EACH DAY
     Route: 065
  11. ADVAIR [Concomitant]
     Dosage: 2 PUFFS
     Route: 065
  12. ATROVENT [Concomitant]
     Dosage: 2 PUFFS FOUR TIMES DAILY
     Route: 065
  13. QUININE [Concomitant]
     Route: 048
  14. IPRATROPIUM BROMIDE [Concomitant]
     Route: 045
  15. LORAZEPAM [Concomitant]
     Dosage: 1 MG-TAKE WHEN NEEDED
     Route: 065
  16. DAXAS [Concomitant]
     Route: 048
  17. DICETEL [Concomitant]
     Route: 048
  18. MEZAVANT [Concomitant]
     Route: 048

REACTIONS (3)
  - Hospitalisation [Recovered/Resolved]
  - Chronic obstructive pulmonary disease [Recovered/Resolved]
  - Umbilical hernia [Not Recovered/Not Resolved]
